FAERS Safety Report 6523807-3 (Version None)
Quarter: 2009Q4

REPORT INFORMATION
  Report Type: 
  Country: None (occurrence: None)
  Receive Date: 20091231
  Receipt Date: 20091216
  Transmission Date: 20100525
  Serious: Yes (Other)
  Sender: FDA-Public Use
  Company Number: US-ROCHE-676892

PATIENT
  Age: 39 Year
  Sex: Female
  Weight: 90.3 kg

DRUGS (6)
  1. AVASTIN [Suspect]
     Route: 042
     Dates: start: 20081128, end: 20091009
  2. HERCEPTIN [Suspect]
     Indication: BREAST CANCER
     Dosage: DURATION OF THERAPY: 1 YEAR
     Route: 042
     Dates: start: 20060714
  3. CARBOPLATIN [Concomitant]
  4. ABRAXANE [Concomitant]
  5. ZOLADEX [Concomitant]
  6. ZOMETA [Concomitant]

REACTIONS (1)
  - MYELITIS TRANSVERSE [None]
